FAERS Safety Report 7955108-0 (Version None)
Quarter: 2011Q4

REPORT INFORMATION
  Report Type: 
  Country: None (occurrence: None)
  Receive Date: 20111202
  Receipt Date: 20111129
  Transmission Date: 20120403
  Serious: Yes (Death)
  Sender: FDA-Public Use
  Company Number: US-CELGENEUS-163-21880-11083239

PATIENT
  Sex: Female

DRUGS (13)
  1. BACTRIM [Concomitant]
     Route: 065
  2. CALCIUM [Concomitant]
     Route: 065
  3. MORPHINE [Concomitant]
     Route: 065
  4. OXYCODONE HCL [Concomitant]
     Route: 065
  5. COLACE [Concomitant]
     Route: 065
  6. EVISTA [Concomitant]
     Route: 065
  7. MULTI-VITAMIN [Concomitant]
     Route: 065
  8. OMEPRAZOLE [Concomitant]
     Route: 065
  9. FLEXERIL [Concomitant]
     Route: 065
  10. SENNA [Concomitant]
     Route: 065
  11. REVLIMID [Suspect]
     Indication: MULTIPLE MYELOMA
     Dosage: 25 MILLIGRAM
     Route: 048
     Dates: start: 20110802
  12. ASPIRIN [Concomitant]
     Route: 065
  13. SIMVASTATIN [Concomitant]
     Route: 065

REACTIONS (1)
  - INTESTINAL PERFORATION [None]
